FAERS Safety Report 5324212-8 (Version None)
Quarter: 2007Q2

REPORT INFORMATION
  Report Type: 
  Country: None (occurrence: None)
  Receive Date: 20070507
  Receipt Date: 20070412
  Transmission Date: 20071010
  Serious: Yes (Other)
  Sender: FDA-Public Use
  Company Number: 128-20785-07041518

PATIENT
  Age: 60 Year
  Sex: Male

DRUGS (11)
  1. THALIDOMIDE [Suspect]
     Indication: MULTIPLE MYELOMA
     Dosage: 100 MG, ORAL
     Route: 048
     Dates: start: 20061121, end: 20070411
  2. ASPIRIN [Concomitant]
  3. METOPROLOL TARTRATE [Concomitant]
  4. IMIDAPRIL (IMIDAPRIL) [Concomitant]
  5. ISOSORBIDE MONONITRATE [Concomitant]
  6. MULTIVITAMIN [Concomitant]
  7. LACTULOSE [Concomitant]
  8. DULCOLAX [Concomitant]
  9. MELOXICAM [Concomitant]
  10. EPARISON [Concomitant]
  11. ASPILET (ACETYLSALICYLIC ACID) [Concomitant]

REACTIONS (17)
  - ARTERIOSCLEROSIS [None]
  - BASOPHIL PERCENTAGE INCREASED [None]
  - EOSINOPHIL PERCENTAGE INCREASED [None]
  - HAEMATOCRIT DECREASED [None]
  - HAEMATOCRIT INCREASED [None]
  - HAEMOGLOBIN DECREASED [None]
  - HAEMOGLOBIN INCREASED [None]
  - LYMPHOCYTE PERCENTAGE DECREASED [None]
  - MEAN CELL HAEMOGLOBIN DECREASED [None]
  - MONOCYTE PERCENTAGE INCREASED [None]
  - MYELOPROLIFERATIVE DISORDER [None]
  - OEDEMA PERIPHERAL [None]
  - PLATELET COUNT DECREASED [None]
  - RED BLOOD CELL COUNT INCREASED [None]
  - RED CELL DISTRIBUTION WIDTH INCREASED [None]
  - THROMBOCYTHAEMIA [None]
  - VENOUS INSUFFICIENCY [None]
